FAERS Safety Report 8514016-7 (Version None)
Quarter: 2012Q3

REPORT INFORMATION
  Report Type: 
  Country: None (occurrence: None)
  Receive Date: 20120717
  Receipt Date: 20120705
  Transmission Date: 20120928
  Serious: No
  Sender: FDA-Public Use
  Company Number: US-009507513-1207USA002367

PATIENT

DRUGS (9)
  1. RIBAVIRIN [Concomitant]
     Dosage: 200 MG, UNK
  2. GLUCOSAMINE [Concomitant]
     Dosage: 1000 MG, UNK
  3. PEG-INTRON [Suspect]
     Dosage: 180 MICROGRAM, QW, PER INJECTION
  4. OMEGA-3 MARINE TRIGLYCERIDES [Concomitant]
     Dosage: 1000 MG, UNK
  5. CARDURA [Concomitant]
     Dosage: 1 MG, UNK
  6. WELLBUTRIN [Concomitant]
     Dosage: 100 MG, UNK
  7. MICARDIS [Concomitant]
     Dosage: 80 MG, UNK
  8. TRICOR [Concomitant]
     Dosage: 48 MG, UNK
  9. VITAMIN E [Concomitant]
     Dosage: 1000 IU, UNK

REACTIONS (7)
  - NAUSEA [None]
  - DIARRHOEA [None]
  - CONFUSIONAL STATE [None]
  - AMNESIA [None]
  - FATIGUE [None]
  - RECTAL HAEMORRHAGE [None]
  - DRY MOUTH [None]
